FAERS Safety Report 12337830 (Version 1)
Quarter: 2016Q2

REPORT INFORMATION
  Report Type: Spontaneous
  Country: US (occurrence: US)
  Receive Date: 20160505
  Receipt Date: 20160505
  Transmission Date: 20160815
  Serious: Yes (Other)
  Sender: FDA-Public Use
  Company Number: US-CITRON PHARMA LLC-B16-0046-AE

PATIENT
  Age: 34 Year
  Sex: Female

DRUGS (4)
  1. ALLOPURINOL. [Suspect]
     Active Substance: ALLOPURINOL
     Indication: HYPERURICAEMIA
     Dosage: UNK
     Route: 065
  2. FURADANTIN  ORAL SUSPENSION [Suspect]
     Active Substance: NITROFURANTOIN
     Indication: URINARY TRACT INFECTION
     Dosage: UNK
     Route: 065
  3. CEPHALEXIN. [Suspect]
     Active Substance: CEPHALEXIN
     Indication: URINARY TRACT INFECTION
  4. LEVOFLOXACIN. [Suspect]
     Active Substance: LEVOFLOXACIN
     Indication: URINARY TRACT INFECTION
     Dosage: UNK
     Route: 065

REACTIONS (8)
  - Erythema multiforme [Unknown]
  - Drug reaction with eosinophilia and systemic symptoms [Unknown]
  - Peripheral swelling [Unknown]
  - Pyrexia [Unknown]
  - Rash [Recovered/Resolved]
  - Blister [Unknown]
  - Swelling face [Recovering/Resolving]
  - Skin exfoliation [Unknown]
